FAERS Safety Report 5347839-6 (Version None)
Quarter: 2007Q2

REPORT INFORMATION
  Report Type: 
  Country: None (occurrence: None)
  Receive Date: 20070606
  Receipt Date: 20070528
  Transmission Date: 20071010
  Serious: Yes (Hospitalization)
  Sender: FDA-Public Use
  Company Number: CN-ROCHE-499885

PATIENT
  Age: 44 Year
  Sex: Female
  Weight: 60 kg

DRUGS (2)
  1. CELLCEPT [Suspect]
     Indication: RENAL TRANSPLANT
     Dosage: DOSAGE REGIMEN REPORTED AS FOUR BOXES PER MONTH.
     Route: 048
     Dates: start: 20060401
  2. CYCLOSPORINE [Concomitant]
     Indication: RENAL TRANSPLANT
     Dosage: DOSAGE REGIMEN REPORTED AS TWO BOTTLES PER MONTH.
     Route: 048
     Dates: start: 20060401

REACTIONS (1)
  - OSTEONECROSIS [None]
